FAERS Safety Report 9482167 (Version 2)
Quarter: 2013Q4

REPORT INFORMATION
  Report Type: Report from Study
  Country: US (occurrence: US)
  Receive Date: 20130828
  Receipt Date: 20131007
  Transmission Date: 20140711
  Serious: Yes (Hospitalization)
  Sender: FDA-Public Use
  Company Number: US-US-EMD SERONO, INC.-7232975

PATIENT
  Age: 61 Year
  Sex: Female

DRUGS (1)
  1. REBIF [Suspect]
     Indication: PRODUCT USED FOR UNKNOWN INDICATION
     Route: 058
     Dates: start: 20040808

REACTIONS (4)
  - Cellulitis [Recovered/Resolved]
  - Fall [Recovered/Resolved]
  - Dry skin [Not Recovered/Not Resolved]
  - Muscle spasms [Recovering/Resolving]
